FAERS Safety Report 19308513 (Version 1)
Quarter: 2021Q2

REPORT INFORMATION
  Report Type: Spontaneous
  Country: US (occurrence: US)
  Receive Date: 20210526
  Receipt Date: 20210526
  Transmission Date: 20210717
  Serious: No
  Sender: FDA-Public Use
  Company Number: US-ASTRAZENECA-2021A374153

PATIENT
  Age: 25488 Day
  Sex: Male
  Weight: 102.1 kg

DRUGS (2)
  1. FARXIGA [Suspect]
     Active Substance: DAPAGLIFLOZIN PROPANEDIOL
     Indication: CARDIAC FAILURE
     Route: 048
     Dates: start: 20210427
  2. LASIX [Concomitant]
     Active Substance: FUROSEMIDE

REACTIONS (4)
  - Nausea [Unknown]
  - Abdominal distension [Unknown]
  - Pollakiuria [Unknown]
  - Insomnia [Unknown]

NARRATIVE: CASE EVENT DATE: 20210427
